FAERS Safety Report 25611473 (Version 5)
Quarter: 2025Q4

REPORT INFORMATION
  Report Type: Spontaneous
  Country: EU (occurrence: EU)
  Receive Date: 20250728
  Receipt Date: 20251206
  Transmission Date: 20260118
  Serious: Yes (Life-Threatening, Hospitalization, Other)
  Sender: AUROBINDO
  Company Number: EU-ASTRAZENECA-202505GLO023509ES

PATIENT
  Age: 29 Year
  Sex: Female
  Weight: 88 kg

DRUGS (31)
  1. CARBOPLATIN [Suspect]
     Active Substance: CARBOPLATIN
     Indication: Non-small cell lung cancer
     Dosage: UNK 1.5 AUC, ONCE EVERY 1 WK
     Dates: start: 20250205, end: 20250402
  2. CARBOPLATIN [Suspect]
     Active Substance: CARBOPLATIN
     Indication: Triple negative breast cancer
  3. PACLITAXEL [Suspect]
     Active Substance: PACLITAXEL
     Indication: Non-small cell lung cancer
     Dosage: 80 MILLIGRAM/SQ. METER, EVERY WEEK
     Dates: start: 20250205, end: 20250402
  4. PACLITAXEL [Suspect]
     Active Substance: PACLITAXEL
     Indication: Triple negative breast cancer
  5. DOXORUBICIN [Suspect]
     Active Substance: DOXORUBICIN
     Indication: HER2 negative breast cancer
     Dosage: 60 MILLIGRAM/SQ. METER (ONCE EVERY 3 WK)
     Dates: start: 20250516, end: 20250516
  6. DOXORUBICIN [Suspect]
     Active Substance: DOXORUBICIN
     Dosage: 45 MILLIGRAM/SQ. METER
     Dates: start: 20250610, end: 20250805
  7. CYCLOPHOSPHAMIDE [Suspect]
     Active Substance: CYCLOPHOSPHAMIDE
     Indication: HER2 negative breast cancer
     Dosage: 600 MILLIGRAM/SQ. METER,ONCE EVERY 3 WK
     Dates: start: 20250516, end: 20250516
  8. CYCLOPHOSPHAMIDE [Suspect]
     Active Substance: CYCLOPHOSPHAMIDE
     Dosage: 450 MILLIGRAM/SQ. METER
     Dates: start: 20250610, end: 20250805
  9. PEMBROLIZUMAB [Suspect]
     Active Substance: PEMBROLIZUMAB
     Indication: Non-small cell lung cancer
     Dosage: 200 MILLIGRAM
     Dates: start: 20250205, end: 20250319
  10. PEMBROLIZUMAB [Suspect]
     Active Substance: PEMBROLIZUMAB
     Indication: Triple negative breast cancer
     Dosage: 200 MILLIGRAM
  11. PEMBROLIZUMAB [Suspect]
     Active Substance: PEMBROLIZUMAB
     Dosage: 200 MILLIGRAM (ONCE EVERY 3 WK)
     Dates: start: 20250610, end: 20250610
  12. DATOPOTAMAB DERUXTECAN [Suspect]
     Active Substance: DATOPOTAMAB DERUXTECAN
     Indication: Product used for unknown indication
     Dosage: UNK
     Route: 065
  13. DEXAMETHASONE PHOSPHATE [Concomitant]
     Active Substance: DEXAMETHASONE PHOSPHATE
     Indication: Product used for unknown indication
     Dosage: 40 MILLIGRAM, AS NECESSARY
     Route: 065
     Dates: start: 20250205
  14. FAMOTIDINE [Concomitant]
     Active Substance: FAMOTIDINE
     Indication: Product used for unknown indication
     Dosage: 20 MILLIGRAM, AS NECESSARY
     Route: 065
     Dates: start: 20250205
  15. ACETAMINOPHEN [Concomitant]
     Active Substance: ACETAMINOPHEN
     Indication: Product used for unknown indication
     Dosage: 1 GRAM, ONCE A DAY
     Route: 065
     Dates: start: 20250212, end: 20250212
  16. Anso [Concomitant]
     Indication: Product used for unknown indication
     Dosage: UNK UNK, TWO TIMES A DAY
     Route: 065
     Dates: start: 20250321, end: 20250326
  17. RETINOL [Concomitant]
     Active Substance: RETINOL
     Indication: Epistaxis
     Dosage: UNK, TWO TIMES A DAY (12500 UNK, BID)
  18. GRANISETRON TEVA ITALIA [Concomitant]
     Indication: Nausea
     Dosage: 3 MILLIGRAM, AS NECESSARY
     Dates: start: 20250804
  19. TRIAMCINOLONE ACETONIDE [Concomitant]
     Active Substance: TRIAMCINOLONE ACETONIDE
     Indication: Haemorrhoids
     Dosage: 0.5 MILLIGRAM, ONCE A DAY
     Dates: start: 20250321, end: 20250326
  20. PENTOSAN POLYSULFATE SODIUM [Concomitant]
     Active Substance: PENTOSAN POLYSULFATE SODIUM
     Indication: Haemorrhoids
     Dosage: 20 MILLIGRAM, ONCE A DAY
     Dates: start: 20250321, end: 20250326
  21. ETORICOXIB [Concomitant]
     Active Substance: ETORICOXIB
     Indication: Arthralgia
     Dosage: 30 MILLIGRAM
     Dates: start: 20250516, end: 20250523
  22. LIDOCAINE HYDROCHLORIDE [Concomitant]
     Active Substance: LIDOCAINE HYDROCHLORIDE
     Indication: Haemorrhoids
     Dosage: 40 MILLIGRAM, ONCE A DAY
     Dates: start: 20250321, end: 20250326
  23. VEOZAH [Concomitant]
     Active Substance: FEZOLINETANT
     Indication: Hot flush
     Dosage: 45 MILLIGRAM, ONCE A DAY
     Route: 065
     Dates: start: 20250326, end: 20250507
  24. DEXCHLORPHENIRAMINE [Concomitant]
     Active Substance: DEXCHLORPHENIRAMINE
     Indication: Chemotherapy side effect prophylaxis
     Dosage: 5 MILLIGRAM, AS NECESSARY
     Route: 065
     Dates: start: 20250205
  25. CLAVULANIC ACID [Concomitant]
     Active Substance: CLAVULANIC ACID
     Indication: Infection
     Dosage: 375 MILLIGRAM, ONCE A DAY
     Route: 065
     Dates: start: 20250525, end: 20250525
  26. AMOXICILLIN [Concomitant]
     Active Substance: AMOXICILLIN
     Indication: Infection
     Dosage: 875 MILLIGRAM, 3 TIMES A DAY
     Dates: start: 20250525, end: 20250525
  27. FLAVIA [Concomitant]
     Indication: Hot flush
     Dosage: UNK, DAILY
     Dates: start: 20250226, end: 20250825
  28. AZITHROMYCIN [Concomitant]
     Active Substance: AZITHROMYCIN
     Indication: Gastroenteritis
     Dosage: 500 MILLIGRAM, ONCE A DAY
     Dates: start: 20250412, end: 20250415
  29. ONDANSETRON [Concomitant]
     Active Substance: ONDANSETRON
     Indication: Nausea
     Dosage: 8 MILLIGRAM, ONCE A DAY
     Dates: start: 20250516, end: 20250714
  30. ONDANSETRON [Concomitant]
     Active Substance: ONDANSETRON
     Dosage: 12 MILLIGRAM, ONCE A DAY
     Dates: start: 20250412, end: 20250714
  31. SEVELAMER HYDROCHLORIDE [Concomitant]
     Active Substance: SEVELAMER HYDROCHLORIDE
     Indication: Hyperphosphataemia
     Dosage: 800 MILLIGRAM, ONCE A DAY
     Route: 065
     Dates: start: 20250516

REACTIONS (1)
  - Febrile neutropenia [Recovered/Resolved]

NARRATIVE: CASE EVENT DATE: 20250523
